FAERS Safety Report 5471806-5 (Version None)
Quarter: 2007Q3

REPORT INFORMATION
  Report Type: 
  Country: None (occurrence: None)
  Receive Date: 20070928
  Receipt Date: 20070604
  Transmission Date: 20080115
  Serious: No
  Sender: FDA-Public Use
  Company Number: US-BRISTOL-MYERS SQUIBB COMPANY-13801063

PATIENT
  Age: 43 Year
  Sex: Female
  Weight: 127 kg

DRUGS (26)
  1. DEFINITY [Suspect]
     Route: 042
  2. MULTI-VITAMIN [Concomitant]
  3. CALCIUM CITRATE [Concomitant]
  4. ALBUTEROL [Concomitant]
  5. CROMOLYN SODIUM INHALATION SOLN [Concomitant]
  6. IPRATROPIUM BROMIDE [Concomitant]
  7. INTAL [Concomitant]
     Route: 055
  8. SINGULAIR [Concomitant]
  9. PREDNISONE [Concomitant]
  10. OMEPRAZOLE [Concomitant]
  11. ALLEGRA D 24 HOUR [Concomitant]
  12. EPINEPHRINE [Concomitant]
  13. DEMADEX [Concomitant]
  14. K-DUR 10 [Concomitant]
  15. EFFEXOR XR [Concomitant]
  16. LUNESTA [Concomitant]
  17. NOVOLOG [Concomitant]
  18. FOSAMAX [Concomitant]
  19. OXYCONTIN [Concomitant]
  20. NEURONTIN [Concomitant]
  21. DILTIAZEM HCL [Concomitant]
  22. DILTIAZEM HCL [Concomitant]
  23. LIPITOR [Concomitant]
  24. GLUCOSAMINE [Concomitant]
  25. ADVAIR DISKUS 100/50 [Concomitant]
     Route: 055
  26. CHILDRENS ASPIRIN [Concomitant]

REACTIONS (1)
  - INJECTION SITE SWELLING [None]
